FAERS Safety Report 5965216-1 (Version None)
Quarter: 2008Q4

REPORT INFORMATION
  Report Type: 
  Country: None (occurrence: None)
  Receive Date: 20081121
  Receipt Date: 20081121
  Transmission Date: 20090506
  Serious: Yes (Hospitalization, Disabling)
  Sender: FDA-Public Use
  Company Number: None

PATIENT
  Age: 42 Year
  Sex: Female
  Weight: 61.2356 kg

DRUGS (2)
  1. CIPRO [Suspect]
     Indication: CYSTITIS
     Dosage: 2X DAILY PO
     Route: 048
     Dates: start: 20081112, end: 20081113
  2. CIPRO [Suspect]
     Indication: KIDNEY INFECTION
     Dosage: 2X DAILY PO
     Route: 048
     Dates: start: 20081112, end: 20081113

REACTIONS (2)
  - CEREBROVASCULAR ACCIDENT [None]
  - TREMOR [None]
